FAERS Safety Report 5635833-7 (Version None)
Quarter: 2008Q1

REPORT INFORMATION
  Report Type: 
  Country: None (occurrence: None)
  Receive Date: 20080221
  Receipt Date: 20080214
  Transmission Date: 20080703
  Serious: Yes (Hospitalization, Other)
  Sender: FDA-Public Use
  Company Number: TAP2008Q00165

PATIENT
  Age: 84 Year
  Sex: Male

DRUGS (11)
  1. LUPRON DEPOT-3 [Suspect]
     Indication: PROSTATE CANCER
     Dosage: 22.5 MG, 1 IN 3 M
     Dates: start: 20061118
  2. FLOMAX (MORNIFLUMATE) [Concomitant]
  3. ALTACE [Concomitant]
  4. ASPIRIN [Concomitant]
  5. APO-METFORMIN (METFORMIN HYDROCHLORIDE) [Concomitant]
  6. PANTOPRAZOLE SODIUM [Concomitant]
  7. LEVOTHYROXINE SODIUM [Concomitant]
  8. CENTRUM (CENTRUM) [Concomitant]
  9. LIPITOR [Concomitant]
  10. NORVASC [Concomitant]
  11. CASODEX [Concomitant]

REACTIONS (3)
  - BLOOD CULTURE POSITIVE [None]
  - PNEUMONIA ASPIRATION [None]
  - STAPHYLOCOCCAL INFECTION [None]
